FAERS Safety Report 7395828-2 (Version None)
Quarter: 2011Q2

REPORT INFORMATION
  Report Type: 
  Country: None (occurrence: None)
  Receive Date: 20110405
  Receipt Date: 20110324
  Transmission Date: 20111010
  Serious: Yes (Other)
  Sender: FDA-Public Use
  Company Number: US-BAYER-2011-009814

PATIENT
  Age: 57 Year
  Sex: Female
  Weight: 45.805 kg

DRUGS (4)
  1. AVELOX [Suspect]
     Indication: PNEUMONITIS
     Dosage: 400 MG, UNK
     Route: 042
     Dates: start: 20100722, end: 20100724
  2. UNCODEABLE ^UNCLASSIFIABLE^ [Concomitant]
  3. AVELOX [Suspect]
     Dosage: 400 MG, UNK
     Route: 048
     Dates: start: 20100701
  4. VALPROIC ACID [Concomitant]
     Dosage: UNK

REACTIONS (3)
  - ALANINE AMINOTRANSFERASE INCREASED [None]
  - ASPARTATE AMINOTRANSFERASE INCREASED [None]
  - CONFUSIONAL STATE [None]
